FAERS Safety Report 7504487-7 (Version None)
Quarter: 2011Q2

REPORT INFORMATION
  Report Type: 
  Country: None (occurrence: None)
  Receive Date: 20110525
  Receipt Date: 20110524
  Transmission Date: 20111010
  Serious: Yes (Life-Threatening)
  Sender: FDA-Public Use
  Company Number: JP-B.I. PHARMACEUTICALS,INC./RIDGEFIELD-2011-BP-13782NB

PATIENT
  Age: 82 Year
  Sex: Female

DRUGS (2)
  1. PRADAXA [Suspect]
     Indication: ATRIAL FIBRILLATION
     Dosage: 220 MG
     Route: 048
     Dates: start: 20110407, end: 20110414
  2. BUFFERIN [Suspect]
     Dosage: 81 MG
     Route: 048
     Dates: end: 20110414

REACTIONS (3)
  - SMALL INTESTINAL HAEMORRHAGE [None]
  - VARICOSE VEIN RUPTURED [None]
  - SHOCK HAEMORRHAGIC [None]
